FAERS Safety Report 11856936 (Version 1)
Quarter: 2015Q4

REPORT INFORMATION
  Report Type: Report from Study
  Country: FR (occurrence: FR)
  Receive Date: 20151221
  Receipt Date: 20151221
  Transmission Date: 20160305
  Serious: Yes (Life-Threatening, Hospitalization)
  Sender: FDA-Public Use
  Company Number: FR-ROCHE-1679637

PATIENT
  Age: 16 Year
  Sex: Male
  Weight: 73 kg

DRUGS (5)
  1. VEMURAFENIB [Suspect]
     Active Substance: VEMURAFENIB
     Indication: ASTROCYTOMA, LOW GRADE
     Route: 048
     Dates: start: 20151120, end: 20151214
  2. OXYCODONE [Concomitant]
     Active Substance: OXYCODONE
     Indication: PAIN
     Route: 042
     Dates: start: 20151123
  3. COBIMETINIB [Suspect]
     Active Substance: COBIMETINIB
     Indication: ASTROCYTOMA, LOW GRADE
     Route: 048
     Dates: start: 20151127, end: 20151214
  4. PARACETAMOL [Concomitant]
     Active Substance: ACETAMINOPHEN
     Indication: PAIN
     Route: 042
     Dates: start: 20151120
  5. SOLU-MEDROL [Concomitant]
     Active Substance: METHYLPREDNISOLONE SODIUM SUCCINATE
     Indication: PAIN
     Route: 042
     Dates: start: 20151120

REACTIONS (1)
  - Cerebral haemorrhage [Not Recovered/Not Resolved]

NARRATIVE: CASE EVENT DATE: 20151214
